FAERS Safety Report 18760921 (Version 1)
Quarter: 2021Q1

REPORT INFORMATION
  Report Type: Report from Study
  Country: US (occurrence: US)
  Receive Date: 20210119
  Receipt Date: 20210119
  Transmission Date: 20210419
  Serious: Yes (Other)
  Sender: FDA-Public Use
  Company Number: US-GILEAD-2020-0459133

PATIENT
  Sex: Male
  Weight: 88 kg

DRUGS (38)
  1. REMDESIVIR. [Suspect]
     Active Substance: REMDESIVIR
     Indication: CORONAVIRUS INFECTION
     Dosage: 200 MG
     Route: 042
     Dates: start: 20200411, end: 20200411
  2. AZITHROMYCIN ANHYDROUS. [Concomitant]
     Active Substance: AZITHROMYCIN ANHYDROUS
     Indication: INFECTION
     Dosage: 500 MG
     Route: 048
     Dates: start: 20200411, end: 20200414
  3. CEFTRIAXONE. [Concomitant]
     Active Substance: CEFTRIAXONE
     Indication: INFECTION
     Dosage: 1 G
     Route: 042
     Dates: start: 20200411, end: 20200415
  4. MIDAZOLAM. [Concomitant]
     Active Substance: MIDAZOLAM
     Dosage: 2 MG
     Route: 042
     Dates: start: 20200411, end: 20200419
  5. ONDANSETRON [Concomitant]
     Active Substance: ONDANSETRON
     Indication: VOMITING
     Dosage: 4 MG
     Route: 048
     Dates: start: 20200410, end: 20200414
  6. TRAZODONE [Concomitant]
     Active Substance: TRAZODONE HYDROCHLORIDE
     Dosage: UNK
     Dates: start: 20200412
  7. ACETAMINOPHEN. [Concomitant]
     Active Substance: ACETAMINOPHEN
     Indication: PYREXIA
     Dosage: 650 MG
     Route: 048
     Dates: start: 20200410
  8. FENTANYL. [Concomitant]
     Active Substance: FENTANYL
     Indication: PAIN
     Dosage: 50
     Route: 042
     Dates: start: 20200411, end: 20200416
  9. HYDROMORPHONE [Concomitant]
     Active Substance: HYDROMORPHONE
     Dosage: UNK
     Dates: start: 20200413, end: 20200419
  10. ZOFRAN [Concomitant]
     Active Substance: ONDANSETRON HYDROCHLORIDE
     Dosage: UNK
     Dates: start: 20200412, end: 20200414
  11. LASIX [Concomitant]
     Active Substance: FUROSEMIDE
     Dosage: 20 MG (START APR?2020)
     Route: 042
  12. FENA [Concomitant]
     Active Substance: MEFENAMIC ACID
     Dosage: 0.2%
     Dates: start: 20200411
  13. REMDESIVIR. [Suspect]
     Active Substance: REMDESIVIR
     Dosage: 100 MG, QD
     Route: 042
     Dates: start: 20200421, end: 20200421
  14. ZEMURON [Concomitant]
     Active Substance: ROCURONIUM BROMIDE
     Dosage: UNK
     Dates: start: 20200411
  15. OXYGEN. [Concomitant]
     Active Substance: OXYGEN
     Dosage: HIGH FLOW NC DUE TO HYPOXIA IN THE 60S, SWITCHED TO BIPAP
  16. OXYGEN. [Concomitant]
     Active Substance: OXYGEN
     Dosage: DE?ESCALATED TO 2L NC, BUT RESUMED 4L NC,WEANED TO RA
     Route: 055
  17. ZINC SULFATE. [Concomitant]
     Active Substance: ZINC SULFATE
     Dosage: 220 MG
     Route: 048
     Dates: start: 20200411, end: 20200412
  18. SODIUM CHLORIDE. [Concomitant]
     Active Substance: SODIUM CHLORIDE
     Dosage: UNK
     Dates: start: 20200410, end: 20200419
  19. LACTATED RINGERS SOLUTION [Concomitant]
     Active Substance: CALCIUM CHLORIDE\POTASSIUM CHLORIDE\SODIUM CHLORIDE\SODIUM LACTATE
     Dosage: UNK
     Dates: start: 20200410, end: 20200410
  20. CALCIUM GLUCONATE. [Concomitant]
     Active Substance: CALCIUM GLUCONATE
     Indication: SUPPLEMENTATION THERAPY
     Dosage: 1 G
     Route: 042
     Dates: start: 20200411, end: 20200411
  21. PERIDEX [CHLORHEXIDINE GLUCONATE] [Concomitant]
     Dosage: UNK
     Dates: start: 20200411, end: 20200419
  22. NORCURON [Concomitant]
     Active Substance: VECURONIUM BROMIDE
     Dosage: UNK
     Dates: start: 20200416, end: 20200417
  23. POLYETHYLENE GLYCOL [Concomitant]
     Active Substance: POLYETHYLENE GLYCOLS
     Indication: CONSTIPATION
     Dosage: 10 MG
     Route: 048
     Dates: start: 20200414, end: 20200414
  24. PLAQUENIL [HYDROXYCHLOROQUINE PHOSPHATE] [Concomitant]
     Active Substance: HYDROXYCHLOROQUINE DIPHOSPHATE
     Dosage: UNK
     Dates: start: 20200411, end: 20200412
  25. SENNA [SENNOSIDE A+B] [Concomitant]
     Active Substance: SENNOSIDES A AND B
     Indication: CONSTIPATION
     Dosage: 50 MG
     Route: 048
     Dates: start: 20200411, end: 20200419
  26. NOREPINEPHRINE. [Concomitant]
     Active Substance: NOREPINEPHRINE
     Indication: HYPOTENSION
     Dosage: 8 MG
     Route: 042
     Dates: start: 20200411, end: 20200414
  27. MIRALAX [Concomitant]
     Active Substance: POLYETHYLENE GLYCOL 3350
     Indication: CONSTIPATION
     Dosage: 17 G
     Route: 048
     Dates: start: 20200414
  28. PROCHLORPERAZINE. [Concomitant]
     Active Substance: PROCHLORPERAZINE
     Indication: VOMITING
     Dosage: 10 MG
     Dates: start: 20200411, end: 20200414
  29. IOPAMIDOL [Concomitant]
     Active Substance: IOPAMIDOL
     Dosage: UNK
     Dates: start: 20200410, end: 20200410
  30. KLOR?CON [Concomitant]
     Active Substance: POTASSIUM CHLORIDE
     Dosage: UNK
     Dates: start: 20200411, end: 20200411
  31. REMDESIVIR. [Suspect]
     Active Substance: REMDESIVIR
     Dosage: 100 MG, QD (HELD ON 20?APR?2020)
     Route: 042
     Dates: start: 20200412, end: 20200419
  32. ENOXAPARIN [Concomitant]
     Active Substance: ENOXAPARIN
     Indication: ANTICOAGULANT THERAPY
     Dosage: 40 MG
     Route: 058
     Dates: start: 20200410
  33. FAMOTIDINE. [Concomitant]
     Active Substance: FAMOTIDINE
     Dosage: 20 MG
     Route: 048
     Dates: start: 20200411, end: 20200412
  34. POTASSIUM CHLORIDE. [Concomitant]
     Active Substance: POTASSIUM CHLORIDE
     Dosage: UNK
     Dates: start: 20200410, end: 20200411
  35. ATROPINE. [Concomitant]
     Active Substance: ATROPINE
     Dosage: UNK
     Dates: start: 20200411, end: 20200411
  36. ARTIFICIAL TEARS [Concomitant]
     Active Substance: GLYCERIN\HYPROMELLOSES\POLYETHYLENE GLYCOL 400
  37. NEO?SYNEPHRINE [Concomitant]
     Active Substance: PHENYLEPHRINE HYDROCHLORIDE
     Dosage: UNK
     Dates: start: 20200411
  38. DIPRIVAN [Concomitant]
     Active Substance: PROPOFOL
     Dosage: UNK
     Dates: start: 20200411

REACTIONS (12)
  - Proteinuria [Not Recovered/Not Resolved]
  - Blood alkaline phosphatase increased [Not Recovered/Not Resolved]
  - Alanine aminotransferase increased [Not Recovered/Not Resolved]
  - Blood glucose increased [Not Recovered/Not Resolved]
  - Blood calcium decreased [Not Recovered/Not Resolved]
  - Haemoglobin abnormal [Not Recovered/Not Resolved]
  - Blood albumin decreased [Not Recovered/Not Resolved]
  - Blood creatinine increased [Not Recovered/Not Resolved]
  - Aspartate aminotransferase increased [Not Recovered/Not Resolved]
  - Blood sodium increased [Not Recovered/Not Resolved]
  - Aspartate aminotransferase increased [Not Recovered/Not Resolved]
  - Glomerular filtration rate decreased [Not Recovered/Not Resolved]

NARRATIVE: CASE EVENT DATE: 20200411
